FAERS Safety Report 5820863-2 (Version None)
Quarter: 2008Q3

REPORT INFORMATION
  Report Type: 
  Country: None (occurrence: None)
  Receive Date: 20080724
  Receipt Date: 20080221
  Transmission Date: 20090109
  Serious: No
  Sender: FDA-Public Use
  Company Number: US-BAYER-200810900BCC

PATIENT
  Age: 55 Year
  Sex: Female
  Weight: 73 kg

DRUGS (7)
  1. ALEVE (CAPLET) [Suspect]
     Indication: EAR PAIN
     Dosage: AS USED: 220 MG  UNIT DOSE: 220 MG
     Route: 048
     Dates: start: 20080221
  2. CARBATROL [Concomitant]
  3. LAMICTAL [Concomitant]
  4. ZANAFLEX [Concomitant]
  5. PRAVASTATIN [Concomitant]
  6. AMBIEN [Concomitant]
  7. LIFE FITNESS VITAMIN D [Concomitant]

REACTIONS (2)
  - EAR PAIN [None]
  - HEADACHE [None]
